FAERS Safety Report 8842109 (Version 1)
Quarter: 2012Q4

REPORT INFORMATION
  Report Type: Spontaneous
  Country: US (occurrence: None)
  Receive Date: 20121015
  Receipt Date: 20121015
  Transmission Date: 20130627
  Serious: Yes (Disabling)
  Sender: FDA-Public Use
  Company Number: None

PATIENT
  Age: 59 Year
  Sex: Female
  Weight: 70.31 kg

DRUGS (2)
  1. LUCENTIS [Suspect]
     Indication: CORNEAL INFECTION
     Dates: start: 20100924
  2. LUCENTIS [Suspect]
     Indication: CORNEAL ULCER
     Dates: start: 20100924

REACTIONS (2)
  - Eye infection [None]
  - Eye excision [None]
